FAERS Safety Report 5676673-2 (Version None)
Quarter: 2008Q1

REPORT INFORMATION
  Report Type: 
  Country: None (occurrence: None)
  Receive Date: 20080321
  Receipt Date: 20080321
  Transmission Date: 20080703
  Serious: Yes (Death, Hospitalization)
  Sender: FDA-Public Use
  Company Number: None

PATIENT
  Sex: Female
  Weight: 76.4 kg

DRUGS (4)
  1. BEVACIZUMAB (RHUMAB FEGF) [Suspect]
     Dosage: 390 MG
     Dates: end: 20080123
  2. LEUCOVORIN CALCIUM [Suspect]
     Dosage: 724 MG
     Dates: end: 20080123
  3. ELOXATIN [Suspect]
     Dosage: 154 MG
     Dates: end: 20080123
  4. FLUOROURACIL [Suspect]
     Dosage: 5068 MG
     Dates: end: 20080123

REACTIONS (13)
  - ABDOMINAL PAIN UPPER [None]
  - ABSCESS [None]
  - CHOLESTASIS [None]
  - COMPUTERISED TOMOGRAM ABNORMAL [None]
  - DYSPNOEA [None]
  - HYPERBILIRUBINAEMIA [None]
  - HYPONATRAEMIA [None]
  - ILL-DEFINED DISORDER [None]
  - JAUNDICE [None]
  - OBSTRUCTION [None]
  - PLEURAL EFFUSION [None]
  - PULMONARY OEDEMA [None]
  - RESPIRATORY FAILURE [None]
